FAERS Safety Report 8317719-2 (Version None)
Quarter: 2012Q2

REPORT INFORMATION
  Report Type: 
  Country: None (occurrence: None)
  Receive Date: 20120427
  Receipt Date: 20120418
  Transmission Date: 20120825
  Serious: Yes (Other)
  Sender: FDA-Public Use
  Company Number: US-ASTRAZENECA-2007UW23326

PATIENT
  Age: 89 Year
  Sex: Male
  Weight: 72.6 kg

DRUGS (6)
  1. NEXIUM [Suspect]
     Route: 048
     Dates: start: 20070814
  2. WARFARIN SODIUM [Concomitant]
     Route: 048
  3. LIPITOR [Concomitant]
     Route: 048
  4. SOTALOL HCL [Concomitant]
     Route: 048
  5. NORVASC [Concomitant]
     Route: 048
  6. XANAX [Concomitant]
     Route: 048

REACTIONS (2)
  - ANEURYSM [None]
  - FLATULENCE [None]
